FAERS Safety Report 14133488 (Version 4)
Quarter: 2018Q1

REPORT INFORMATION
  Report Type: Report from Study
  Country: CA (occurrence: CA)
  Receive Date: 20171027
  Receipt Date: 20180317
  Transmission Date: 20180508
  Serious: Yes (Other)
  Sender: FDA-Public Use
  Company Number: CA-TAKEDA-2017TUS018400

PATIENT
  Age: 41 Year
  Sex: Female
  Weight: 83 kg

DRUGS (5)
  1. VITAMIN D [Concomitant]
     Active Substance: CHOLECALCIFEROL
     Dosage: 10000 IU, UNK
  2. CALCIUM [Concomitant]
     Active Substance: CALCIUM
     Dosage: 500 MG, BID
  3. PREDNISONE. [Concomitant]
     Active Substance: PREDNISONE
     Dosage: 30 MG, QD
  4. VEDOLIZUMAB [Suspect]
     Active Substance: VEDOLIZUMAB
     Dosage: 300 MG, Q4WEEKS
     Route: 042
     Dates: start: 20171018, end: 20180110
  5. VEDOLIZUMAB [Suspect]
     Active Substance: VEDOLIZUMAB
     Indication: CROHN^S DISEASE
     Dosage: 300 MG, UNK
     Route: 042
     Dates: start: 20170524

REACTIONS (5)
  - Off label use [Unknown]
  - Crohn^s disease [Unknown]
  - Pregnancy [Recovered/Resolved]
  - Drug ineffective [Unknown]
  - Abortion spontaneous [Unknown]

NARRATIVE: CASE EVENT DATE: 201707
